FAERS Safety Report 25330640 (Version 6)
Quarter: 2025Q3

REPORT INFORMATION
  Report Type: Spontaneous
  Country: US (occurrence: US)
  Receive Date: 20250519
  Receipt Date: 20250919
  Transmission Date: 20251021
  Serious: No
  Sender: INCYTE
  Company Number: US-INCYTE CORPORATION-2025IN005084

PATIENT
  Age: 58 Year

DRUGS (3)
  1. JAKAFI [Suspect]
     Active Substance: RUXOLITINIB
     Indication: Essential thrombocythaemia
     Dosage: 10 MILLIGRAM, BID
  2. JAKAFI [Suspect]
     Active Substance: RUXOLITINIB
     Dosage: 5 MILLIGRAM, BID
  3. XOLAIR [Concomitant]
     Active Substance: OMALIZUMAB
     Indication: Product used for unknown indication
     Route: 065

REACTIONS (22)
  - Headache [Unknown]
  - Fatigue [Unknown]
  - Abdominal pain [Unknown]
  - Pain [Unknown]
  - Weight increased [Unknown]
  - Anxiety [Unknown]
  - Nervousness [Unknown]
  - Cough [Unknown]
  - Mental status changes [Unknown]
  - General physical condition abnormal [Unknown]
  - Asthenia [Unknown]
  - Chest discomfort [Unknown]
  - Dyspnoea [Unknown]
  - Heart rate increased [Unknown]
  - Oxygen saturation abnormal [Unknown]
  - Memory impairment [Unknown]
  - Joint swelling [Unknown]
  - Muscle spasms [Unknown]
  - Hyperhidrosis [Unknown]
  - Feeling abnormal [Unknown]
  - Intentional product use issue [Unknown]
  - Off label use [Unknown]
